FAERS Safety Report 24862143 (Version 1)
Quarter: 2025Q1

REPORT INFORMATION
  Report Type: Spontaneous
  Country: DE (occurrence: DE)
  Receive Date: 20250120
  Receipt Date: 20250120
  Transmission Date: 20250409
  Serious: Yes (Death, Other)
  Sender: GALDERMA
  Company Number: DE-GALDERMA-DE2025000290

PATIENT

DRUGS (1)
  1. BENZOYL PEROXIDE [Suspect]
     Active Substance: BENZOYL PEROXIDE
     Indication: Product used for unknown indication
     Route: 061

REACTIONS (3)
  - Stillbirth [Fatal]
  - Exposure during pregnancy [Recovered/Resolved]
  - Foetal exposure during pregnancy [Recovered/Resolved]
